FAERS Safety Report 12905537 (Version 1)
Quarter: 2016Q4

REPORT INFORMATION
  Report Type: Spontaneous
  Country: US (occurrence: US)
  Receive Date: 20161103
  Receipt Date: 20161103
  Transmission Date: 20170207
  Serious: Yes (Death)
  Sender: FDA-Public Use
  Company Number: US-ROCHE-1847086

PATIENT
  Age: 58 Year
  Sex: Female

DRUGS (5)
  1. CAPECITABINE. [Suspect]
     Active Substance: CAPECITABINE
     Indication: COLORECTAL CANCER METASTATIC
     Dosage: DAYS 1-14 OF A 21 DAY CYCLE
     Route: 048
     Dates: start: 201401
  2. DABRAFENIB [Concomitant]
     Active Substance: DABRAFENIB
     Route: 065
  3. ENOXAPARIN [Suspect]
     Active Substance: ENOXAPARIN
     Indication: PULMONARY EMBOLISM
     Route: 065
  4. REGORAFENIB [Suspect]
     Active Substance: REGORAFENIB
     Indication: COLORECTAL CANCER METASTATIC
     Dosage: DAYS 1-21 OF A 28 DAY CYCLE
     Route: 048
     Dates: start: 201401
  5. TRAMETINIB [Concomitant]
     Active Substance: TRAMETINIB
     Route: 065

REACTIONS (4)
  - Fatigue [Unknown]
  - Pulmonary haemorrhage [Fatal]
  - Pneumonia [Fatal]
  - Diarrhoea [Unknown]
